FAERS Safety Report 6807079-8 (Version None)
Quarter: 2010Q2

REPORT INFORMATION
  Report Type: 
  Country: None (occurrence: None)
  Receive Date: 20100629
  Receipt Date: 20080714
  Transmission Date: 20101027
  Serious: No
  Sender: FDA-Public Use
  Company Number: US-PFIZER INC-2008059219

PATIENT
  Sex: Female

DRUGS (7)
  1. TIKOSYN [Suspect]
     Indication: ATRIAL FIBRILLATION
     Dates: start: 20080701
  2. NORVASC [Concomitant]
  3. WARFARIN SODIUM [Concomitant]
  4. METOPROLOL [Concomitant]
  5. LASIX [Concomitant]
  6. PRILOSEC [Concomitant]
  7. CALCIUM CARBONATE [Concomitant]

REACTIONS (1)
  - MYALGIA [None]
